FAERS Safety Report 5415800-9 (Version None)
Quarter: 2007Q3

REPORT INFORMATION
  Report Type: 
  Country: None (occurrence: None)
  Receive Date: 20070815
  Receipt Date: 20070809
  Transmission Date: 20080115
  Serious: Yes (Other)
  Sender: FDA-Public Use
  Company Number: DE-ASTRAZENECA-2007PK01469

PATIENT
  Age: 713 Month
  Sex: Female
  Weight: 71 kg

DRUGS (2)
  1. ATACAND HCT [Suspect]
     Indication: HYPERTENSION
     Dosage: 16/12.5 MG DAILY
     Route: 048
  2. ATACAND HCT [Suspect]
     Dosage: 16/12.5 MG DAILY
     Route: 048
     Dates: start: 20070501

REACTIONS (2)
  - VITREOUS DETACHMENT [None]
  - VITREOUS OPACITIES [None]
